FAERS Safety Report 5765972-1 (Version None)
Quarter: 2008Q2

REPORT INFORMATION
  Report Type: 
  Country: None (occurrence: None)
  Receive Date: 20080611
  Receipt Date: 20080221
  Transmission Date: 20081010
  Serious: Yes (Disabling)
  Sender: FDA-Public Use
  Company Number: US-BRISTOL-MYERS SQUIBB COMPANY-14097505

PATIENT
  Age: 68 Year
  Sex: Male

DRUGS (1)
  1. CARBIDOPA + LEVODOPA [Suspect]
     Dosage: 1 DOSAGE FORM=1 TABLET
     Route: 048
     Dates: start: 20061113, end: 20061128

REACTIONS (1)
  - DRUG INEFFECTIVE [None]
